FAERS Safety Report 8783054 (Version 2)
Quarter: 2013Q1

REPORT INFORMATION
  Report Type: Spontaneous
  Country: DE (occurrence: DE)
  Receive Date: 20120913
  Receipt Date: 20130307
  Transmission Date: 20140127
  Serious: Yes (Other)
  Sender: FDA-Public Use
  Company Number: DE-TEVA-358709USA

PATIENT
  Sex: 0

DRUGS (3)
  1. TREANDA [Suspect]
     Indication: PLASMA CELL MYELOMA
     Dosage: UID/QD
     Route: 042
  2. PREDNISONE [Suspect]
     Indication: PLASMA CELL MYELOMA
     Dosage: CYCLICAL
     Route: 048
  3. BORTEZOMIB [Suspect]
     Indication: PLASMA CELL MYELOMA
     Route: 042

REACTIONS (2)
  - Neuropathy peripheral [Unknown]
  - Incorrect dose administered [Unknown]
